FAERS Safety Report 23838814 (Version 2)
Quarter: 2024Q2

REPORT INFORMATION
  Report Type: Report from Study
  Country: US (occurrence: US)
  Receive Date: 20240509
  Receipt Date: 20240515
  Transmission Date: 20240715
  Serious: Yes (Other)
  Sender: FDA-Public Use
  Company Number: US-ARGENX-2024-ARGX-US002734

PATIENT

DRUGS (1)
  1. VYVGART [Suspect]
     Active Substance: EFGARTIGIMOD ALFA-FCAB
     Indication: Product used for unknown indication
     Dosage: UNK
     Route: 042

REACTIONS (6)
  - Myasthenia gravis [Unknown]
  - Dizziness [Unknown]
  - Pain in extremity [Unknown]
  - Dyskinesia [Unknown]
  - Extremity contracture [Unknown]
  - Fall [Unknown]

NARRATIVE: CASE EVENT DATE: 20240419
